FAERS Safety Report 18808051 (Version 2)
Quarter: 2021Q2

REPORT INFORMATION
  Report Type: Spontaneous
  Country: US (occurrence: US)
  Receive Date: 20210129
  Receipt Date: 20210401
  Transmission Date: 20210717
  Serious: Yes (Other)
  Sender: FDA-Public Use
  Company Number: US-GLAXOSMITHKLINE-US2021GSK021925

PATIENT
  Sex: Female

DRUGS (4)
  1. ZANTAC [Suspect]
     Active Substance: RANITIDINE HYDROCHLORIDE
     Indication: BLOOD PRESSURE MEASUREMENT
     Dosage: 300 MG, 2 X PER DAY
     Route: 065
     Dates: start: 199807, end: 202004
  2. RANITIDINE. [Suspect]
     Active Substance: RANITIDINE
     Indication: BLOOD PRESSURE MEASUREMENT
     Dosage: 300 MG, QD
     Route: 065
     Dates: start: 199807, end: 202004
  3. ZANTAC [Suspect]
     Active Substance: RANITIDINE HYDROCHLORIDE
     Indication: BLOOD PRESSURE MEASUREMENT
     Dosage: 300 MG, 2 X PER DAY
     Route: 065
     Dates: start: 199807, end: 202004
  4. RANITIDINE. [Suspect]
     Active Substance: RANITIDINE
     Indication: BLOOD PRESSURE MEASUREMENT
     Dosage: 300 MG, QD
     Route: 065
     Dates: start: 199807, end: 202004

REACTIONS (3)
  - Uterine cancer [Unknown]
  - Colorectal cancer [Unknown]
  - Ovarian cancer [Unknown]
